FAERS Safety Report 4682123-5 (Version None)
Quarter: 2005Q2

REPORT INFORMATION
  Report Type: 
  Country: None (occurrence: None)
  Receive Date: 20050531
  Receipt Date: 20050412
  Transmission Date: 20051028
  Serious: Yes (Hospitalization)
  Sender: FDA-Public Use
  Company Number: FABR-11078

PATIENT
  Sex: Female
  Weight: 60 kg

DRUGS (1)
  1. FABRAZYME [Suspect]
     Indication: FABRY'S DISEASE
     Dosage: 60 MG Q2WKS IV
     Route: 042
     Dates: start: 20041104

REACTIONS (1)
  - VERTIGO [None]
